FAERS Safety Report 7077146-5 (Version None)
Quarter: 2010Q4

REPORT INFORMATION
  Report Type: 
  Country: None (occurrence: None)
  Receive Date: 20101101
  Receipt Date: 20101026
  Transmission Date: 20110411
  Serious: Yes (Hospitalization)
  Sender: FDA-Public Use
  Company Number: A0888795A

PATIENT
  Age: 82 Year
  Sex: Female

DRUGS (13)
  1. CARVEDILOL [Suspect]
     Indication: CARDIAC FAILURE CONGESTIVE
     Dosage: 25MG TWICE PER DAY
     Route: 048
  2. TRAZODONE HCL [Concomitant]
  3. LISINOPRIL [Concomitant]
  4. AMLODIPINE [Concomitant]
  5. OMEPRAZOLE [Concomitant]
  6. MEGESTROL ACETATE [Concomitant]
  7. ISOSORBIDE DINITRATE [Concomitant]
  8. FUROSEMIDE [Concomitant]
  9. CLONIDINE [Concomitant]
  10. PROAIR HFA [Concomitant]
  11. SIMVASTATIN [Concomitant]
  12. HYDROCODONE [Concomitant]
  13. FOLIC ACID [Concomitant]

REACTIONS (1)
  - DYSPNOEA [None]
